FAERS Safety Report 7661490-4 (Version None)
Quarter: 2011Q3

REPORT INFORMATION
  Report Type: 
  Country: None (occurrence: None)
  Receive Date: 20110805
  Receipt Date: 20101018
  Transmission Date: 20111222
  Serious: No
  Sender: FDA-Public Use
  Company Number: US-ABBOTT-10P-163-0679429-00

PATIENT
  Sex: Female
  Weight: 95.34 kg

DRUGS (8)
  1. NIASPAN [Suspect]
     Indication: BLOOD CHOLESTEROL INCREASED
     Route: 048
     Dates: start: 20100701
  2. NIASPAN [Suspect]
     Route: 048
     Dates: start: 20100401, end: 20100601
  3. MOBIC [Concomitant]
     Indication: ARTHRITIS
  4. NIASPAN [Suspect]
     Route: 048
     Dates: start: 20100601, end: 20100701
  5. OMEPRAZOLE [Concomitant]
     Indication: GASTROOESOPHAGEAL REFLUX DISEASE
  6. AVAPRO [Concomitant]
     Indication: HYPERTENSION
  7. SYNTHROID [Concomitant]
     Indication: HYPOTHYROIDISM
  8. LIPITOR [Concomitant]
     Indication: BLOOD CHOLESTEROL INCREASED
     Dates: start: 20000101

REACTIONS (2)
  - PRURITUS [None]
  - RASH [None]
